FAERS Safety Report 8511766-3 (Version None)
Quarter: 2012Q3

REPORT INFORMATION
  Report Type: 
  Country: None (occurrence: None)
  Receive Date: 20120711
  Receipt Date: 20120711
  Transmission Date: 20120928
  Serious: Yes (Hospitalization)
  Sender: FDA-Public Use
  Company Number: None

PATIENT
  Age: 79 Year
  Sex: Male
  Weight: 105.5 kg

DRUGS (1)
  1. DOFETILIDE [Suspect]
     Indication: ATRIAL FIBRILLATION
     Dosage: 250 MCG BID PO
     Route: 048
     Dates: start: 20110525, end: 20120216

REACTIONS (2)
  - DYSPNOEA [None]
  - ELECTROCARDIOGRAM QT PROLONGED [None]
